FAERS Safety Report 8526462 (Version 2)
Quarter: 2013Q2

REPORT INFORMATION
  Report Type: Spontaneous
  Country: BR (occurrence: BR)
  Receive Date: 20120423
  Receipt Date: 20130402
  Transmission Date: 20140414
  Serious: Yes (Other)
  Sender: FDA-Public Use
  Company Number: BR-B.I. PHARMACEUTICALS,INC./RIDGEFIELD-2012-BR-00411BR

PATIENT
  Age: 34 Year
  Sex: Male

DRUGS (2)
  1. MICARDIS [Suspect]
     Indication: HYPERTENSION
     Dosage: 80 MG
     Route: 048
  2. MICARDIS [Suspect]
     Dosage: 40 MG
     Route: 048

REACTIONS (2)
  - Laryngeal oedema [Recovered/Resolved]
  - Somnolence [Recovered/Resolved]
